FAERS Safety Report 22182283 (Version 1)
Quarter: 2023Q2

REPORT INFORMATION
  Report Type: Spontaneous
  Country: US (occurrence: None)
  Receive Date: 20230405
  Receipt Date: 20230405
  Transmission Date: 20230722
  Serious: Yes (Other)
  Sender: FDA-Public Use
  Company Number: None

PATIENT
  Age: 72 Year
  Sex: Female
  Weight: 52.16 kg

DRUGS (13)
  1. PAXLOVID [Suspect]
     Active Substance: NIRMATRELVIR\RITONAVIR
     Indication: COVID-19 treatment
     Dosage: FREQUENCY : TWICE A DAY;?
     Route: 048
     Dates: start: 20230315, end: 20230317
  2. Calcium citrate/Vit D3 [Concomitant]
  3. VitD3 [Concomitant]
  4. COENZYME Q10 [Concomitant]
     Active Substance: DIETARY SUPPLEMENT\UBIDECARENONE
  5. VITAMIN B12 [Concomitant]
     Active Substance: CYANOCOBALAMIN
  6. MAGNESIUM GLYCINATE [Concomitant]
     Active Substance: MAGNESIUM GLYCINATE
  7. ACETAMINOPHEN [Concomitant]
     Active Substance: ACETAMINOPHEN
  8. CETIRIZINE HYDROCHLORIDE [Concomitant]
     Active Substance: CETIRIZINE HYDROCHLORIDE
  9. OLMESARTAN MEDOXOMIL [Concomitant]
     Active Substance: OLMESARTAN MEDOXOMIL
  10. ROSUVASTATIN [Concomitant]
     Active Substance: ROSUVASTATIN
  11. Tynlos [Concomitant]
  12. ALBUTEROL [Concomitant]
     Active Substance: ALBUTEROL
  13. ESTRADIOL [Concomitant]
     Active Substance: ESTRADIOL

REACTIONS (11)
  - Headache [None]
  - Nausea [None]
  - Vomiting [None]
  - Rash macular [None]
  - Night sweats [None]
  - Sleep disorder [None]
  - Dizziness [None]
  - Vertigo [None]
  - Therapy interrupted [None]
  - COVID-19 [None]
  - SARS-CoV-2 test positive [None]

NARRATIVE: CASE EVENT DATE: 20230316
